FAERS Safety Report 8895764 (Version 2)
Quarter: 2016Q4

REPORT INFORMATION
  Report Type: Report from Study
  Country: DE (occurrence: DE)
  Receive Date: 20121108
  Receipt Date: 20161212
  Transmission Date: 20170207
  Serious: Yes (Hospitalization)
  Sender: FDA-Public Use
  Company Number: DE-ROCHE-1150158

PATIENT
  Age: 51 Year
  Sex: Male
  Weight: 85 kg

DRUGS (4)
  1. CISPLATIN. [Concomitant]
     Active Substance: CISPLATIN
     Indication: METASTATIC GASTRIC CANCER
  2. 5-FU [Concomitant]
     Active Substance: FLUOROURACIL
     Indication: METASTATIC GASTRIC CANCER
  3. TRASTUZUMAB [Suspect]
     Active Substance: TRASTUZUMAB
     Indication: HER-2 POSITIVE GASTRIC CANCER
     Dosage: 10TH CYCLE ON 25/APR/2012
     Route: 042
     Dates: start: 20111027, end: 20120425
  4. INNOHEP [Concomitant]
     Active Substance: TINZAPARIN SODIUM
     Indication: DEEP VEIN THROMBOSIS
     Route: 065

REACTIONS (5)
  - Renal failure [Recovered/Resolved]
  - Hypovolaemia [Recovered/Resolved]
  - Diarrhoea [Recovered/Resolved]
  - Hyponatraemia [Recovered/Resolved]
  - Hypokalaemia [Recovered/Resolved]

NARRATIVE: CASE EVENT DATE: 20120429
